FAERS Safety Report 4792437-6 (Version None)
Quarter: 2005Q4

REPORT INFORMATION
  Report Type: 
  Country: None (occurrence: None)
  Receive Date: 20051010
  Receipt Date: 20050325
  Transmission Date: 20060501
  Serious: No
  Sender: FDA-Public Use
  Company Number: US-GLAXOSMITHKLINE-A0551314A

PATIENT
  Age: 88 Year
  Sex: Female

DRUGS (15)
  1. LANOXIN [Suspect]
     Indication: ATRIAL FIBRILLATION
     Dosage: .25MG PER DAY
     Route: 048
     Dates: start: 20050308
  2. METOPROLOL [Concomitant]
  3. NORVASC [Concomitant]
  4. AVALIDE [Concomitant]
  5. SYNTHROID [Concomitant]
  6. NEXIUM [Concomitant]
  7. FUROSEMIDE [Concomitant]
  8. POTASSIUM CHLORIDE [Concomitant]
  9. BEXTRA [Concomitant]
  10. NITROGLYCERIN [Concomitant]
  11. PRAVACHOL [Concomitant]
  12. ACTONEL [Concomitant]
  13. MULTIVITAMIN [Concomitant]
  14. OCUVITE VITAMIN [Concomitant]
  15. CALTRATE [Concomitant]

REACTIONS (1)
  - LIPOMA [None]
